FAERS Safety Report 7917645-4 (Version None)
Quarter: 2011Q4

REPORT INFORMATION
  Report Type: 
  Country: None (occurrence: None)
  Receive Date: 20111116
  Receipt Date: 20111108
  Transmission Date: 20120403
  Serious: Yes (Hospitalization)
  Sender: FDA-Public Use
  Company Number: US-SANOFI-AVENTIS-2011SA074089

PATIENT
  Age: 75 Year
  Sex: Male
  Weight: 93.9 kg

DRUGS (27)
  1. INSULIN [Concomitant]
     Dates: start: 20080101
  2. ESOMEPRAZOLE [Concomitant]
     Dates: start: 20100414
  3. ACETYLSALICYLIC ACID SRT [Concomitant]
     Dates: start: 20080101
  4. FISH OIL [Concomitant]
     Dates: start: 20080101
  5. SIMVASTATIN [Concomitant]
     Dates: start: 20020101
  6. PLACEBO [Suspect]
     Indication: OSTEOARTHRITIS
     Dates: start: 20110414, end: 20110505
  7. INSULIN DETEMIR [Concomitant]
     Dates: start: 20080101
  8. METOPROLOL SUCCINATE [Concomitant]
     Dates: start: 20040101
  9. COUMADIN [Concomitant]
     Dates: start: 20110505
  10. GEMFIBROZIL [Concomitant]
     Dates: start: 20020101
  11. AMLODIPINE [Concomitant]
     Dates: start: 20110101
  12. CARVEDILOL [Concomitant]
     Dates: start: 20110503
  13. IBUPROFEN [Suspect]
     Dates: start: 20110414, end: 20110505
  14. TOCOPHEROL CONCENTRATE CAP [Concomitant]
  15. FUROSEMIDE [Suspect]
     Route: 048
     Dates: start: 20110602
  16. UBIDECARENONE [Concomitant]
     Dates: start: 20100201
  17. AMIODARONE HCL [Concomitant]
     Dates: start: 20110505
  18. CELECOXIB [Suspect]
     Indication: OSTEOARTHRITIS
     Dates: start: 20110414, end: 20110505
  19. NAPROXEN [Suspect]
     Indication: OSTEOARTHRITIS
     Dates: start: 20110414, end: 20110505
  20. METFORMIN HCL [Concomitant]
     Dates: start: 20110503
  21. PROTONIX [Concomitant]
     Dates: start: 20110505, end: 20110601
  22. INSULIN ISOPHANE BOVINE/INSULIN ISOPHANE PORCINE [Concomitant]
     Dates: start: 20080101
  23. HUMULIN R [Concomitant]
     Dates: start: 20080101
  24. ALL OTHER THERAPEUTIC PRODUCTS [Concomitant]
     Dates: start: 20100715
  25. ATENOLOL [Concomitant]
     Dates: start: 20110602
  26. FOLIC ACID [Concomitant]
     Dates: start: 20080101
  27. VITAMIN E [Concomitant]
     Dates: start: 20080101

REACTIONS (5)
  - ATRIAL FLUTTER [None]
  - HYPOKALAEMIA [None]
  - RENAL FAILURE ACUTE [None]
  - CHEST PAIN [None]
  - CARDIAC FAILURE CONGESTIVE [None]
